FAERS Safety Report 4641742-2 (Version None)
Quarter: 2005Q2

REPORT INFORMATION
  Report Type: 
  Country: None (occurrence: None)
  Receive Date: 20050420
  Receipt Date: 20050415
  Transmission Date: 20051028
  Serious: Yes (Hospitalization)
  Sender: FDA-Public Use
  Company Number: Q05-008

PATIENT
  Sex: Male
  Weight: 81.1939 kg

DRUGS (6)
  1. QUADRAMET [Suspect]
     Indication: METASTASES TO BONE
     Dosage: 82 MCI X 1 IV
     Route: 042
     Dates: start: 20041223
  2. QUADRAMET [Suspect]
     Indication: PROSTATE CANCER
     Dosage: 82 MCI X 1 IV
     Route: 042
     Dates: start: 20041223
  3. DARVOCET [Concomitant]
  4. ZOLOFT [Concomitant]
  5. FLOMAX [Concomitant]
  6. TERAZOSIN HCL [Concomitant]

REACTIONS (5)
  - HAEMOGLOBIN DECREASED [None]
  - METASTASES TO LIVER [None]
  - PAIN [None]
  - PLATELET COUNT DECREASED [None]
  - WHITE BLOOD CELL COUNT DECREASED [None]
